FAERS Safety Report 5025395-X (Version None)
Quarter: 2006Q2

REPORT INFORMATION
  Report Type: 
  Country: None (occurrence: None)
  Receive Date: 20060608
  Receipt Date: 20060531
  Transmission Date: 20061013
  Serious: Yes (Hospitalization)
  Sender: FDA-Public Use
  Company Number: 146030USA

PATIENT
  Age: 69 Year
  Sex: Female

DRUGS (4)
  1. DOXORUBICIN HCL [Suspect]
     Indication: BREAST CANCER
  2. CYCLOPHOSPHAMIDE [Suspect]
  3. DOCETAXEL [Suspect]
  4. NEULASTA [Concomitant]

REACTIONS (2)
  - PALMAR-PLANTAR ERYTHRODYSAESTHESIA SYNDROME [None]
  - SKIN ULCER [None]
